FAERS Safety Report 7373932-2 (Version None)
Quarter: 2011Q1

REPORT INFORMATION
  Report Type: 
  Country: None (occurrence: None)
  Receive Date: 20110325
  Receipt Date: 20110322
  Transmission Date: 20110831
  Serious: No
  Sender: FDA-Public Use
  Company Number: US-PFIZER INC-2011063576

PATIENT
  Sex: Female
  Weight: 90.703 kg

DRUGS (1)
  1. ADVIL LIQUI-GELS [Suspect]
     Indication: HEADACHE
     Dosage: 200 MG, DAILY
     Route: 048
     Dates: start: 20110322, end: 20110322

REACTIONS (1)
  - MALAISE [None]
